FAERS Safety Report 7555881-X (Version None)
Quarter: 2011Q2

REPORT INFORMATION
  Report Type: 
  Country: None (occurrence: None)
  Receive Date: 20110618
  Receipt Date: 20110606
  Transmission Date: 20111010
  Serious: Yes (Other)
  Sender: FDA-Public Use
  Company Number: DE-BAYER-2011-048603

PATIENT

DRUGS (1)
  1. AVELOX [Suspect]

REACTIONS (1)
  - URINARY RETENTION [None]
